FAERS Safety Report 7402805-1 (Version None)
Quarter: 2011Q2

REPORT INFORMATION
  Report Type: 
  Country: None (occurrence: None)
  Receive Date: 20110408
  Receipt Date: 20110404
  Transmission Date: 20111010
  Serious: Yes (Other)
  Sender: FDA-Public Use
  Company Number: FR-ROCHE-769380

PATIENT
  Sex: Male

DRUGS (4)
  1. DEPAKENE [Concomitant]
  2. RIVOTRIL [Suspect]
     Dosage: FREQUENCY: DAILY, FORM: ELECTRIC SYRINGE
     Route: 042
     Dates: start: 20110105
  3. RIVOTRIL [Suspect]
     Route: 042
     Dates: end: 20110106
  4. KEPPRA [Concomitant]

REACTIONS (2)
  - DEPRESSED LEVEL OF CONSCIOUSNESS [None]
  - SOMNOLENCE [None]
